FAERS Safety Report 7075150-4 (Version None)
Quarter: 2010Q4

REPORT INFORMATION
  Report Type: 
  Country: None (occurrence: None)
  Receive Date: 20101029
  Receipt Date: 20100607
  Transmission Date: 20110411
  Serious: No
  Sender: FDA-Public Use
  Company Number: US-WYE-H15672210

PATIENT
  Sex: Male

DRUGS (1)
  1. ALAVERT [Suspect]

REACTIONS (4)
  - EYE PAIN [None]
  - FATIGUE [None]
  - MALAISE [None]
  - NAUSEA [None]
